FAERS Safety Report 4468226-9 (Version None)
Quarter: 2004Q4

REPORT INFORMATION
  Report Type: 
  Country: None (occurrence: None)
  Receive Date: 20041004
  Receipt Date: 20040921
  Transmission Date: 20050328
  Serious: Yes (Hospitalization, Other)
  Sender: FDA-Public Use
  Company Number: 2004063482

PATIENT
  Age: 49 Year
  Sex: Male
  Weight: 52.8 kg

DRUGS (5)
  1. ZITHROMAX [Suspect]
     Indication: PNEUMONIA
     Dosage: 500 MG (500 MG, 1 IN 1 D), ORAL
     Route: 048
     Dates: start: 20040612, end: 20040614
  2. CEFOTIAM HYDROCHLORIDE [Suspect]
     Indication: PNEUMONIA
     Dosage: 2 GRAM (1 D), INTRAVENOUS
     Route: 042
     Dates: start: 20040610, end: 20040614
  3. KITASAMYCIN (KITASAMYCIN) [Concomitant]
  4. MEFENAMIC ACID [Concomitant]
  5. GLYNATE (GLYCYRRHIZA EXTRACT, MAGNESIUM ALUMINUM SILICATE, PIPETHANATE [Concomitant]

REACTIONS (3)
  - HAEMODIALYSIS [None]
  - RENAL FAILURE ACUTE [None]
  - RENAL TUBULAR NECROSIS [None]
